FAERS Safety Report 5110822-X (Version None)
Quarter: 2006Q3

REPORT INFORMATION
  Report Type: 
  Country: None (occurrence: None)
  Receive Date: 20060919
  Receipt Date: 20060905
  Transmission Date: 20061208
  Serious: Yes (Death, Life-Threatening)
  Sender: FDA-Public Use
  Company Number: US017884

PATIENT
  Age: 36 Year
  Sex: Male

DRUGS (3)
  1. MODAFINIL [Suspect]
     Dosage: 72000 MG ONCE ORAL
     Route: 048
     Dates: start: 20060521, end: 20060521
  2. ZYPREXA [Concomitant]
  3. RIVOTRIL [Concomitant]

REACTIONS (15)
  - CARDIAC ARREST [None]
  - CHILLS [None]
  - COMA [None]
  - CONVULSION [None]
  - HYPERTONIA [None]
  - HYPOTHERMIA [None]
  - INCORRECT DOSE ADMINISTERED [None]
  - METABOLIC ACIDOSIS [None]
  - MULTI-ORGAN FAILURE [None]
  - MUSCLE SPASTICITY [None]
  - MYDRIASIS [None]
  - OLIGURIA [None]
  - RESPIRATORY ACIDOSIS [None]
  - SHOCK [None]
  - TREMOR [None]
